FAERS Safety Report 15014335 (Version 1)
Quarter: 2018Q2

REPORT INFORMATION
  Report Type: Report from Study
  Country: RO (occurrence: RO)
  Receive Date: 20180615
  Receipt Date: 20180615
  Transmission Date: 20180711
  Serious: Yes (Hospitalization)
  Sender: FDA-Public Use
  Company Number: RO-ROCHE-2138253

PATIENT
  Sex: Female
  Weight: 80 kg

DRUGS (1)
  1. MABTHERA [Suspect]
     Active Substance: RITUXIMAB
     Indication: RHEUMATOID ARTHRITIS
     Dosage: ONCE AT 2 WEEKS EVERY 6 MONTHS
     Route: 042
     Dates: start: 2011

REACTIONS (2)
  - Laboratory test abnormal [Unknown]
  - Weight increased [Unknown]
